FAERS Safety Report 10272565 (Version 1)
Quarter: 2014Q2

REPORT INFORMATION
  Report Type: Spontaneous
  Country: US (occurrence: None)
  Receive Date: 20140627
  Receipt Date: 20140627
  Transmission Date: 20141212
  Serious: Yes (Other)
  Sender: FDA-Public Use
  Company Number: KV201400128

PATIENT
  Age: 55 Year
  Sex: Female

DRUGS (1)
  1. MAKENA [Suspect]
     Indication: MENOPAUSE
     Route: 030
     Dates: start: 2013

REACTIONS (6)
  - Coma [None]
  - Adrenocortical insufficiency acute [None]
  - Hypotension [None]
  - Blood sodium decreased [None]
  - Blood potassium decreased [None]
  - Off label use [None]
